FAERS Safety Report 10157810 (Version 1)
Quarter: 2014Q2

REPORT INFORMATION
  Report Type: Report from Study
  Country: US (occurrence: US)
  Receive Date: 20140507
  Receipt Date: 20140507
  Transmission Date: 20141212
  Serious: Yes (Hospitalization, Other)
  Sender: FDA-Public Use
  Company Number: US-ABBVIE-14P-163-1231575-00

PATIENT
  Age: 67 Year
  Sex: Female

DRUGS (8)
  1. HUMIRA [Suspect]
     Indication: PSORIASIS
     Dates: start: 2012, end: 201312
  2. HUMIRA [Suspect]
     Dates: start: 201403
  3. METHOTREXATE [Concomitant]
     Indication: PRODUCT USED FOR UNKNOWN INDICATION
  4. FOLIC ACID [Concomitant]
     Indication: PRODUCT USED FOR UNKNOWN INDICATION
  5. METFORMIN [Concomitant]
     Indication: DIABETES MELLITUS
  6. LOSARTAN HYDROCHLOROTHIAZIDE ACTAVIS [Concomitant]
     Indication: HYPERTENSION
     Dosage: 50/12.5 MG
  7. CITALOPRAM [Concomitant]
     Indication: DEPRESSION
  8. CRANBERRY [Concomitant]
     Indication: PROPHYLAXIS URINARY TRACT INFECTION

REACTIONS (10)
  - Scab [Recovered/Resolved]
  - Fall [Recovered/Resolved]
  - Hypothyroidism [Unknown]
  - Cellulitis [Recovered/Resolved]
  - Skin wound [Recovered/Resolved]
  - Sciatica [Not Recovered/Not Resolved]
  - Psoriasis [Recovering/Resolving]
  - Inappropriate schedule of drug administration [Unknown]
  - Vitamin B12 deficiency [Unknown]
  - Purulent discharge [Recovered/Resolved]
